FAERS Safety Report 16924930 (Version 1)
Quarter: 2019Q4

REPORT INFORMATION
  Report Type: Spontaneous
  Country: US (occurrence: US)
  Receive Date: 20190823
  Receipt Date: 20190823
  Transmission Date: 20200122
  Serious: Yes (Hospitalization)
  Sender: FDA-Public Use
  Company Number: None

PATIENT
  Sex: Female

DRUGS (6)
  1. HUMIRA [Suspect]
     Active Substance: ADALIMUMAB
     Indication: PSORIASIS
     Route: 058
     Dates: start: 20190521
  2. LISINOPRIL. [Concomitant]
     Active Substance: LISINOPRIL
  3. LITHIUM CARB [Concomitant]
     Active Substance: LITHIUM CARBONATE
  4. KLONOPIN [Concomitant]
     Active Substance: CLONAZEPAM
  5. NEXIUM- ZANTAC [Concomitant]
  6. EFFEXOR [Concomitant]
     Active Substance: VENLAFAXINE HYDROCHLORIDE

REACTIONS (2)
  - Overdose [None]
  - Therapy cessation [None]
